FAERS Safety Report 10551360 (Version 1)
Quarter: 2014Q4

REPORT INFORMATION
  Report Type: Spontaneous
  Country: US (occurrence: None)
  Receive Date: 20141021
  Receipt Date: 20141021
  Transmission Date: 20150529
  Serious: Yes (Other)
  Sender: FDA-Public Use
  Company Number: 1347620

PATIENT
  Age: 60 Year
  Sex: Female

DRUGS (2)
  1. CATHFLO ACTIVASE [Suspect]
     Active Substance: ALTEPLASE
     Indication: DEVICE OCCLUSION
  2. KYPROLIS [Concomitant]
     Active Substance: CARFILZOMIB

REACTIONS (2)
  - No therapeutic response [None]
  - Treatment failure [None]
